FAERS Safety Report 14078230 (Version 1)
Quarter: 2017Q4

REPORT INFORMATION
  Report Type: Spontaneous
  Country: US (occurrence: None)
  Receive Date: 20171011
  Receipt Date: 20171011
  Transmission Date: 20180321
  Serious: Yes (Other)
  Sender: FDA-Public Use
  Company Number: None

PATIENT
  Age: 75 Year
  Sex: Female
  Weight: 70.31 kg

DRUGS (9)
  1. ASPIRIN. [Concomitant]
     Active Substance: ASPIRIN
  2. TURMERIC [Concomitant]
     Active Substance: HERBALS\TURMERIC
  3. POTASSIUM [Concomitant]
     Active Substance: POTASSIUM
  4. BIOTIN [Concomitant]
     Active Substance: BIOTIN
  5. ISOSORBIDE MONO ER [Concomitant]
  6. COQ10 [Concomitant]
     Active Substance: UBIDECARENONE
  7. VITAMIN B12 [Concomitant]
     Active Substance: CYANOCOBALAMIN
  8. TRULICITY [Suspect]
     Active Substance: DULAGLUTIDE
  9. METOPROLOL TARTRATE. [Concomitant]
     Active Substance: METOPROLOL TARTRATE

REACTIONS (1)
  - Neck mass [None]

NARRATIVE: CASE EVENT DATE: 20171001
